FAERS Safety Report 9256978 (Version 1)
Quarter: 2013Q2

REPORT INFORMATION
  Report Type: Spontaneous
  Country: AU (occurrence: None)
  Receive Date: 20130424
  Receipt Date: 20130424
  Transmission Date: 20140414
  Serious: Yes (Hospitalization, Other)
  Sender: FDA-Public Use
  Company Number: VAL_02299_2013

PATIENT
  Age: 32 Year
  Sex: Female

DRUGS (1)
  1. METOPROLOL [Suspect]
     Indication: PRODUCT USED FOR UNKNOWN INDICATION

REACTIONS (8)
  - Fall [None]
  - Dyspnoea [None]
  - Fatigue [None]
  - Bradycardia [None]
  - Electrocardiogram PR prolongation [None]
  - QRS axis abnormal [None]
  - Gene mutation [None]
  - Syncope [None]
